FAERS Safety Report 19810465 (Version 10)
Quarter: 2022Q3

REPORT INFORMATION
  Report Type: Report from Study
  Country: UG (occurrence: UG)
  Receive Date: 20210909
  Receipt Date: 20220716
  Transmission Date: 20221027
  Serious: Yes (Death, Congenital Anomaly, Other)
  Sender: FDA-Public Use
  Company Number: UG-AUROBINDO-AUR-APL-2021-039025

PATIENT
  Weight: 3.2 kg

DRUGS (5)
  1. EMTRICITABINE\TENOFOVIR [Suspect]
     Active Substance: EMTRICITABINE\TENOFOVIR
     Indication: Product used for unknown indication
     Dosage: 500 MILLIGRAM, ONCE A DAY
     Route: 064
     Dates: start: 20210430
  2. TENOFOVIR DISOPROXIL FUMARATE [Suspect]
     Active Substance: TENOFOVIR DISOPROXIL FUMARATE
     Indication: Product used for unknown indication
     Dosage: UNK
     Route: 064
     Dates: start: 20191011
  3. TENOFOVIR DISOPROXIL FUMARATE [Suspect]
     Active Substance: TENOFOVIR DISOPROXIL FUMARATE
     Dosage: 600 MILLIGRAM, DAILY
     Route: 064
     Dates: start: 20191115, end: 20210305
  4. MEBENDAZOLE [Concomitant]
     Active Substance: MEBENDAZOLE
     Indication: Product used for unknown indication
     Dosage: UNK
     Route: 064
  5. LEVONORGESTREL [Concomitant]
     Active Substance: LEVONORGESTREL
     Indication: Product used for unknown indication
     Dosage: UNK
     Route: 064

REACTIONS (4)
  - Exomphalos [Fatal]
  - Sepsis neonatal [Fatal]
  - Dehydration [Fatal]
  - Foetal exposure during pregnancy [Unknown]
